FAERS Safety Report 6704441-9 (Version None)
Quarter: 2010Q2

REPORT INFORMATION
  Report Type: 
  Country: None (occurrence: None)
  Receive Date: 20100430
  Receipt Date: 20100420
  Transmission Date: 20101027
  Serious: Yes (Hospitalization)
  Sender: FDA-Public Use
  Company Number: US-JNJFOC-20100304291

PATIENT
  Sex: Female
  Weight: 127 kg

DRUGS (10)
  1. USTEKINUMAB [Suspect]
     Route: 058
  2. USTEKINUMAB [Suspect]
     Indication: SARCOIDOSIS
     Route: 058
  3. PLACEBO [Suspect]
     Indication: SARCOIDOSIS
     Route: 058
  4. PREDNISONE [Concomitant]
     Indication: SARCOIDOSIS
     Route: 048
  5. NAPROXEN [Concomitant]
  6. ULTRAM [Concomitant]
  7. LASIX [Concomitant]
  8. POTASSIUM CHLORIDE [Concomitant]
  9. DOXYCYCLINE [Concomitant]
  10. DAPSONE [Concomitant]

REACTIONS (1)
  - CONFUSIONAL STATE [None]
